FAERS Safety Report 16975296 (Version 1)
Quarter: 2019Q4

REPORT INFORMATION
  Report Type: Spontaneous
  Country: US (occurrence: US)
  Receive Date: 20191029
  Receipt Date: 20191029
  Transmission Date: 20200122
  Serious: Yes (Disabling)
  Sender: FDA-Public Use
  Company Number: None

PATIENT
  Age: 37 Year
  Sex: Female
  Weight: 60.75 kg

DRUGS (1)
  1. ALPRAZOLAM. [Suspect]
     Active Substance: ALPRAZOLAM
     Indication: ANXIETY
     Dosage: ?          QUANTITY:10 TABLET(S);?
     Route: 048
     Dates: start: 20191023, end: 20191024

REACTIONS (5)
  - Nausea [None]
  - Dizziness [None]
  - Vomiting [None]
  - Diarrhoea [None]
  - Recalled product administered [None]

NARRATIVE: CASE EVENT DATE: 20191023
